FAERS Safety Report 7780986-8 (Version None)
Quarter: 2011Q3

REPORT INFORMATION
  Report Type: 
  Country: None (occurrence: None)
  Receive Date: 20110927
  Receipt Date: 20110915
  Transmission Date: 20111222
  Serious: Yes (Other)
  Sender: FDA-Public Use
  Company Number: PHEH2011US03280

PATIENT
  Sex: Male
  Weight: 81.633 kg

DRUGS (1)
  1. EXJADE [Suspect]
     Indication: MYELODYSPLASTIC SYNDROME
     Dosage: 1500 MG, DAILY
     Route: 048
     Dates: start: 20091007, end: 20110624

REACTIONS (2)
  - WEIGHT DECREASED [None]
  - WOUND [None]
